FAERS Safety Report 4575301-7 (Version None)
Quarter: 2005Q1

REPORT INFORMATION
  Report Type: 
  Country: None (occurrence: None)
  Receive Date: 20050209
  Receipt Date: 20050127
  Transmission Date: 20050727
  Serious: Yes (Death, Hospitalization)
  Sender: FDA-Public Use
  Company Number: JP-JNJFOC-20050106609

PATIENT
  Sex: Female
  Weight: 58 kg

DRUGS (3)
  1. REMICADE [Suspect]
     Indication: RHEUMATOID ARTHRITIS
     Dosage: HAS HAD NINE TREATMENTS
     Route: 042
  2. RHEUMATREX [Concomitant]
     Route: 049
  3. RINDERON [Concomitant]
     Route: 049

REACTIONS (7)
  - CONTUSION [None]
  - FALL [None]
  - GENERAL PHYSICAL HEALTH DETERIORATION [None]
  - PYELONEPHRITIS [None]
  - SEPSIS [None]
  - SKIN GRAFT [None]
  - WOUND [None]
